FAERS Safety Report 7327641 (Version 2)
Quarter: 2014Q2

REPORT INFORMATION
  Report Type: Spontaneous
  Country: FR (occurrence: None)
  Receive Date: 20100303
  Receipt Date: 20140416
  Transmission Date: 20141212
  Serious: Yes (Death, Hospitalization)
  Sender: FDA-Public Use
  Company Number: AUR-APL-2010-00467

PATIENT
  Age: 34 Year
  Sex: Female

DRUGS (1)
  1. MINOCYCLINE HYDROCHLORIDE [Suspect]
     Indication: GENITAL INFECTION

REACTIONS (17)
  - Eosinophilic myocarditis [None]
  - Dyspnoea [None]
  - Pyrexia [None]
  - Arthralgia [None]
  - Tachycardia [None]
  - Oropharyngeal pain [None]
  - Lymphadenopathy [None]
  - Hepatitis [None]
  - Leukocytosis [None]
  - Cardiogenic shock [None]
  - Type III immune complex mediated reaction [None]
  - Face oedema [None]
  - Rash pruritic [None]
  - Cardiomegaly [None]
  - Left ventricular dysfunction [None]
  - Ejection fraction decreased [None]
  - Drug hypersensitivity [None]
